FAERS Safety Report 4306920-0 (Version None)
Quarter: 2004Q1

REPORT INFORMATION
  Report Type: 
  Country: None (occurrence: None)
  Receive Date: 20040225
  Receipt Date: 20040211
  Transmission Date: 20041129
  Serious: Yes (Hospitalization)
  Sender: FDA-Public Use
  Company Number: EWC031137062

PATIENT
  Age: 75 Year
  Sex: Female

DRUGS (15)
  1. XIGRIS [Suspect]
     Indication: SEPSIS
     Dosage: 24 MG/KG/HR
     Dates: start: 20031114, end: 20031116
  2. ZANTAC [Concomitant]
  3. FRAXIPARINE (HEPARIN-FRACTION, CALCIUM SALT) [Concomitant]
  4. AUGMENTIN [Concomitant]
  5. TAVANIC (LEVOFLOXACIN) [Concomitant]
  6. SOLU-CORTEF [Concomitant]
  7. DIAFUSOR (GLYCERYL TRINITRATE) [Concomitant]
  8. DIPRIVAN [Concomitant]
  9. ULTIVA [Concomitant]
  10. LEVOPHED [Concomitant]
  11. LASIX [Concomitant]
  12. ACTRAPID (INSULIN) [Concomitant]
  13. SODIUM HYDROGEN CARBONATE [Concomitant]
  14. LANOXIN [Concomitant]
  15. CORDARONE [Concomitant]

REACTIONS (4)
  - DISSEMINATED INTRAVASCULAR COAGULATION [None]
  - HEPATIC FUNCTION ABNORMAL [None]
  - PROTHROMBIN TIME SHORTENED [None]
  - THROMBOCYTOPENIA [None]
